FAERS Safety Report 5430232-5 (Version None)
Quarter: 2007Q3

REPORT INFORMATION
  Report Type: 
  Country: None (occurrence: None)
  Receive Date: 20070731
  Receipt Date: 20070511
  Transmission Date: 20080115
  Serious: No
  Sender: FDA-Public Use
  Company Number: US200705003404

PATIENT
  Age: 58 Year
  Sex: Female
  Weight: 111.1 kg

DRUGS (8)
  1. BYETTA [Suspect]
     Indication: TYPE 2 DIABETES MELLITUS
     Dosage: 5 UG, 2/D, SUBCUTANEOUS; 5 UG, DAILY (1/D), SUBCUTANEOUS; 5 UG, DAILY (1/D), SUBCUTANEOUS; 5 UG, DAI
     Route: 058
     Dates: start: 20070501, end: 20070501
  2. BYETTA [Suspect]
     Indication: TYPE 2 DIABETES MELLITUS
     Dosage: 5 UG, 2/D, SUBCUTANEOUS; 5 UG, DAILY (1/D), SUBCUTANEOUS; 5 UG, DAILY (1/D), SUBCUTANEOUS; 5 UG, DAI
     Route: 058
     Dates: start: 20070501, end: 20070509
  3. BYETTA [Suspect]
     Indication: TYPE 2 DIABETES MELLITUS
     Dosage: 5 UG, 2/D, SUBCUTANEOUS; 5 UG, DAILY (1/D), SUBCUTANEOUS; 5 UG, DAILY (1/D), SUBCUTANEOUS; 5 UG, DAI
     Route: 058
     Dates: start: 20070501, end: 20070509
  4. BYETTA [Suspect]
     Indication: TYPE 2 DIABETES MELLITUS
     Dosage: 5 UG, 2/D, SUBCUTANEOUS; 5 UG, DAILY (1/D), SUBCUTANEOUS; 5 UG, DAILY (1/D), SUBCUTANEOUS; 5 UG, DAI
     Route: 058
     Dates: start: 20070501, end: 20070509
  5. BYETTA [Suspect]
  6. GLYBURIDE [Concomitant]
  7. METFORMIN HCL [Concomitant]
  8. ACTOS [Concomitant]

REACTIONS (3)
  - BLOOD GLUCOSE ABNORMAL [None]
  - BLOOD GLUCOSE DECREASED [None]
  - TREMOR [None]
